FAERS Safety Report 11151238 (Version 1)
Quarter: 2015Q2

REPORT INFORMATION
  Report Type: Spontaneous
  Country: RO (occurrence: RO)
  Receive Date: 20150601
  Receipt Date: 20150601
  Transmission Date: 20150821
  Serious: Yes (Other)
  Sender: FDA-Public Use
  Company Number: RO-ASTRAZENECA-2015SE52890

PATIENT
  Age: 818 Month
  Sex: Female
  Weight: 102 kg

DRUGS (6)
  1. LIPANTIL [Concomitant]
     Active Substance: FENOFIBRATE
     Route: 048
  2. ATACAND [Suspect]
     Active Substance: CANDESARTAN CILEXETIL
     Indication: MYOCARDIAL ISCHAEMIA
     Route: 048
     Dates: start: 2013, end: 201504
  3. OLICARD [Concomitant]
     Dosage: 40 UNKNOWN
     Route: 048
  4. ATACAND [Suspect]
     Active Substance: CANDESARTAN CILEXETIL
     Indication: HYPERTENSION
     Route: 048
     Dates: start: 2013, end: 201504
  5. PENTOXIFILIN [Concomitant]
     Route: 048
  6. INDAPAMID [Concomitant]
     Active Substance: INDAPAMIDE
     Route: 048

REACTIONS (3)
  - Rash [Recovered/Resolved]
  - Malaise [Recovered/Resolved]
  - Pruritus [Recovered/Resolved]

NARRATIVE: CASE EVENT DATE: 201504
